FAERS Safety Report 20526127 (Version 1)
Quarter: 2022Q1

REPORT INFORMATION
  Report Type: Spontaneous
  Country: FR (occurrence: FR)
  Receive Date: 20220228
  Receipt Date: 20220228
  Transmission Date: 20220423
  Serious: Yes (Hospitalization)
  Sender: FDA-Public Use
  Company Number: None

PATIENT
  Age: 18 Year
  Sex: Female

DRUGS (5)
  1. ALPRAZOLAM [Suspect]
     Active Substance: ALPRAZOLAM
     Dosage: 7.5 MG, SINGLE
     Route: 048
     Dates: start: 20220128, end: 20220128
  2. SERTRALINE HYDROCHLORIDE [Suspect]
     Active Substance: SERTRALINE HYDROCHLORIDE
     Dosage: 1.4 G, SINGLE
     Route: 048
     Dates: start: 20220128, end: 20220128
  3. CYAMEMAZINE [Suspect]
     Active Substance: CYAMEMAZINE
     Dosage: 375 MG, SINGLE
     Route: 048
     Dates: start: 20220128, end: 20220128
  4. HYDROXYZINE HYDROCHLORIDE [Suspect]
     Active Substance: HYDROXYZINE HYDROCHLORIDE
     Dosage: 375 MG, SINGLE
     Route: 048
     Dates: start: 20220128, end: 20220128
  5. MIRTAZAPINE [Suspect]
     Active Substance: MIRTAZAPINE
     Dosage: 180 MG, SINGLE
     Route: 048
     Dates: start: 20220128, end: 20220128

REACTIONS (5)
  - Drug abuse [Recovering/Resolving]
  - Overdose [Unknown]
  - Toxicity to various agents [Recovered/Resolved]
  - Depressed level of consciousness [Recovered/Resolved]
  - Somnolence [Recovered/Resolved]

NARRATIVE: CASE EVENT DATE: 20220128
